FAERS Safety Report 8353426-8 (Version None)
Quarter: 2012Q2

REPORT INFORMATION
  Report Type: 
  Country: None (occurrence: None)
  Receive Date: 20120511
  Receipt Date: 20110712
  Transmission Date: 20120825
  Serious: No
  Sender: FDA-Public Use
  Company Number: US-GLAXOSMITHKLINE-A0881626A

PATIENT
  Age: 61 Year
  Sex: Female
  Weight: 62.7 kg

DRUGS (1)
  1. TYKERB [Suspect]
     Indication: PRODUCT USED FOR UNKNOWN INDICATION
     Dosage: 1750MG PER DAY
     Route: 048
     Dates: start: 20100831

REACTIONS (10)
  - RETCHING [None]
  - CONSTIPATION [None]
  - DIARRHOEA [None]
  - OVERDOSE [None]
  - GINGIVAL PAIN [None]
  - DIZZINESS [None]
  - GINGIVAL RECESSION [None]
  - NAUSEA [None]
  - VOMITING [None]
  - GINGIVAL SWELLING [None]
